FAERS Safety Report 23386772 (Version 1)
Quarter: 2024Q1

REPORT INFORMATION
  Report Type: Report from Study
  Country: GB (occurrence: GB)
  Receive Date: 20240110
  Receipt Date: 20240110
  Transmission Date: 20240409
  Serious: Yes (Hospitalization, Other)
  Sender: FDA-Public Use
  Company Number: GB-ROCHE-3349689

PATIENT
  Age: 81 Year
  Weight: 64.8 kg

DRUGS (13)
  1. VINCRISTINE [Suspect]
     Active Substance: VINCRISTINE
     Indication: Follicular lymphoma
     Dosage: MOST RECENT DOSE ADMINISTERED ON 14/MAR/2023; ;
     Route: 065
     Dates: start: 20221121
  2. CYCLOPHOSPHAMIDE [Suspect]
     Active Substance: CYCLOPHOSPHAMIDE
     Indication: Follicular lymphoma
     Dosage: MOST RECENT DOSE ADMINISTERED ON 14/MAR/2023; ;
     Route: 065
     Dates: start: 20221121
  3. TIOTROPIUM BROMIDE [Concomitant]
     Active Substance: TIOTROPIUM BROMIDE
     Indication: Chronic obstructive pulmonary disease
     Route: 065
     Dates: start: 2002
  4. GABAPENTIN [Concomitant]
     Active Substance: GABAPENTIN
     Indication: Spinal osteoarthritis
     Route: 065
     Dates: start: 2015
  5. TAMSULOSIN [Concomitant]
     Active Substance: TAMSULOSIN
     Indication: Benign prostatic hyperplasia
     Route: 065
     Dates: start: 2014
  6. PREDNISOLONE [Suspect]
     Active Substance: PREDNISOLONE
     Indication: Follicular lymphoma
     Dosage: MOST RECENT DOSE ADMINISTERED ON 14/MAR/2023; ;
     Route: 065
     Dates: start: 20221121
  7. OBINUTUZUMAB [Suspect]
     Active Substance: OBINUTUZUMAB
     Indication: Follicular lymphoma
     Dosage: CONCENTRATION- 25MG/ML. MOST RECENT DOSE ADMINISTERED ON 14/MAR/2023; ;
     Route: 042
     Dates: start: 20221121
  8. MOMETASONE [Concomitant]
     Active Substance: MOMETASONE
     Indication: Rash
     Dates: start: 20221111
  9. ACETAMINOPHEN [Concomitant]
     Active Substance: ACETAMINOPHEN
     Indication: Pain
     Route: 065
     Dates: start: 20221110
  10. AMLODIPINE [Concomitant]
     Active Substance: AMLODIPINE BESYLATE
     Indication: Hypertension
     Route: 065
     Dates: start: 2002
  11. ATORVASTATIN [Concomitant]
     Active Substance: ATORVASTATIN
     Indication: Transient ischaemic attack
     Route: 065
     Dates: start: 202209
  12. ALBUTEROL [Concomitant]
     Active Substance: ALBUTEROL
     Indication: Chronic obstructive pulmonary disease
     Route: 065
     Dates: start: 2017
  13. CLOPIDOGREL [Concomitant]
     Active Substance: CLOPIDOGREL BISULFATE
     Indication: Transient ischaemic attack
     Route: 065
     Dates: start: 2022

REACTIONS (2)
  - Infection [Recovered/Resolved]
  - Urinary tract infection [Recovered/Resolved]

NARRATIVE: CASE EVENT DATE: 20230115
